FAERS Safety Report 16769672 (Version 2)
Quarter: 2019Q3

REPORT INFORMATION
  Report Type: Spontaneous
  Country: IT (occurrence: IT)
  Receive Date: 20190903
  Receipt Date: 20190906
  Transmission Date: 20191005
  Serious: Yes (Other)
  Sender: FDA-Public Use
  Company Number: PHHY2019IT203174

PATIENT
  Age: 12 Month
  Sex: Male

DRUGS (5)
  1. TOPOTECAN HYDROCHLORIDE. [Suspect]
     Active Substance: TOPOTECAN HYDROCHLORIDE
     Indication: RETINOBLASTOMA
     Dosage: 0.3-2 MG, Q3W
     Route: 013
  2. TOPOTECAN HYDROCHLORIDE. [Suspect]
     Active Substance: TOPOTECAN HYDROCHLORIDE
     Dosage: 1 INJECTION 1 WEEK AFTER IA
     Route: 031
  3. MELPHALAN. [Suspect]
     Active Substance: MELPHALAN
     Dosage: 30 UG (10-30 UG), QW
     Route: 031
  4. MELPHALAN. [Suspect]
     Active Substance: MELPHALAN
     Indication: RETINOBLASTOMA
     Dosage: 5 MG (2.5-5 MG), Q3W
     Route: 013
  5. CARBOPLATIN. [Suspect]
     Active Substance: CARBOPLATIN
     Indication: RETINOBLASTOMA
     Dosage: 30 MG, Q3W
     Route: 013

REACTIONS (2)
  - Product use in unapproved indication [Unknown]
  - Chorioretinal atrophy [Unknown]
